FAERS Safety Report 8533321-1 (Version None)
Quarter: 2012Q3

REPORT INFORMATION
  Report Type: 
  Country: None (occurrence: None)
  Receive Date: 20120724
  Receipt Date: 20120713
  Transmission Date: 20120928
  Serious: Yes (Other)
  Sender: FDA-Public Use
  Company Number: JP-VERTEX PHARMACEUTICALS INC.-AE-2012-006213

PATIENT
  Age: 65 Year
  Sex: Male

DRUGS (13)
  1. PEG-INTRON [Concomitant]
     Indication: HEPATITIS C
     Route: 058
     Dates: start: 20120216
  2. REBETOL [Concomitant]
     Route: 048
     Dates: start: 20120405
  3. PREDNISOLONE [Concomitant]
     Route: 048
     Dates: start: 20120221, end: 20120226
  4. AMLODIPINE [Concomitant]
     Route: 048
  5. MEIBIS [Concomitant]
     Route: 048
  6. TELAVIC (TELAPREVIR) [Suspect]
     Indication: HEPATITIS C
     Route: 048
     Dates: start: 20120216, end: 20120426
  7. LENDORMIN [Concomitant]
     Route: 048
     Dates: start: 20120218, end: 20120308
  8. GLIMEPIRIDE [Concomitant]
     Route: 048
  9. REBETOL [Concomitant]
     Indication: HEPATITIS C
     Route: 048
     Dates: start: 20120216, end: 20120315
  10. REBETOL [Concomitant]
     Route: 048
     Dates: start: 20120316, end: 20120404
  11. LANSOPRAZOLE [Concomitant]
     Route: 048
     Dates: start: 20120220, end: 20120308
  12. BISOPROLOL FUMARATE [Concomitant]
     Route: 048
  13. METFORMIN HCL [Concomitant]
     Route: 048

REACTIONS (2)
  - SKIN DISORDER [None]
  - DRUG ERUPTION [None]
